FAERS Safety Report 13101515 (Version 1)
Quarter: 2017Q1

REPORT INFORMATION
  Report Type: Spontaneous
  Country: FR (occurrence: FR)
  Receive Date: 20170110
  Receipt Date: 20170110
  Transmission Date: 20170428
  Serious: Yes (Hospitalization, Other)
  Sender: FDA-Public Use
  Company Number: FR-PFIZER INC-2017003348

PATIENT
  Age: 5 Year
  Sex: Male

DRUGS (1)
  1. ADVILMED ENFANTS ET NOURRISSONS [Suspect]
     Active Substance: IBUPROFEN
     Indication: CIRCUMCISION
     Dosage: 1 DF, 2X/DAY
     Route: 048
     Dates: start: 20161026, end: 20161030

REACTIONS (2)
  - Haematemesis [Recovered/Resolved]
  - Pharyngitis bacterial [Unknown]

NARRATIVE: CASE EVENT DATE: 20161031
